FAERS Safety Report 7272814-4 (Version None)
Quarter: 2011Q1

REPORT INFORMATION
  Report Type: 
  Country: None (occurrence: None)
  Receive Date: 20110203
  Receipt Date: 20110121
  Transmission Date: 20110831
  Serious: Yes (Other)
  Sender: FDA-Public Use
  Company Number: PHFR2011GB00890

PATIENT
  Sex: Female

DRUGS (1)
  1. CLIMAVAL [Suspect]
     Dosage: 3 MG, UNK

REACTIONS (2)
  - THERAPEUTIC RESPONSE DECREASED [None]
  - INSULIN RESISTANCE [None]
